FAERS Safety Report 24282189 (Version 2)
Quarter: 2024Q4

REPORT INFORMATION
  Report Type: Spontaneous
  Country: JP (occurrence: JP)
  Receive Date: 20240904
  Receipt Date: 20241216
  Transmission Date: 20250115
  Serious: Yes (Hospitalization, Other)
  Sender: ELI LILLY AND COMPANY
  Company Number: JP-Merck Healthcare KGaA-2024046125

PATIENT
  Age: 80 Year
  Sex: Male

DRUGS (3)
  1. ERBITUX [Suspect]
     Active Substance: CETUXIMAB
     Indication: Hypopharyngeal cancer
     Dosage: 400 MG/M2
     Route: 041
     Dates: start: 20230511, end: 20230511
  2. CARBOPLATIN [Suspect]
     Active Substance: CARBOPLATIN
     Indication: Hypopharyngeal cancer
     Dosage: UNK, WEEKLY (1/W)
     Route: 041
     Dates: start: 20230511, end: 20230518
  3. PACLITAXEL [Concomitant]
     Active Substance: PACLITAXEL
     Indication: Hypopharyngeal cancer
     Dosage: UNK

REACTIONS (2)
  - Malignant neoplasm progression [Unknown]
  - Febrile neutropenia [Recovered/Resolved]

NARRATIVE: CASE EVENT DATE: 20230601
